FAERS Safety Report 4513429-8 (Version None)
Quarter: 2004Q4

REPORT INFORMATION
  Report Type: 
  Country: None (occurrence: None)
  Receive Date: 20041130
  Receipt Date: 20040928
  Transmission Date: 20050328
  Serious: No
  Sender: FDA-Public Use
  Company Number: US-BRISTOL-MYERS SQUIBB COMPANY-12716775

PATIENT
  Age: 57 Year
  Sex: Male
  Weight: 103 kg

DRUGS (2)
  1. ERBITUX [Suspect]
     Indication: COLON CANCER METASTATIC
     Route: 042
     Dates: start: 20040917, end: 20040917
  2. BENADRYL [Concomitant]
     Indication: PREMEDICATION
     Dates: start: 20040917, end: 20040917

REACTIONS (2)
  - RASH [None]
  - RASH PUSTULAR [None]
